FAERS Safety Report 24196598 (Version 3)
Quarter: 2024Q4

REPORT INFORMATION
  Report Type: Spontaneous
  Country: US (occurrence: US)
  Receive Date: 20240810
  Receipt Date: 20241110
  Transmission Date: 20250114
  Serious: Yes (Other)
  Sender: SANOFI AVENTIS
  Company Number: US-SA-SAC20240806000095

PATIENT
  Age: 41 Year
  Sex: Female

DRUGS (1)
  1. DUPIXENT [Suspect]
     Active Substance: DUPILUMAB
     Indication: Dermatitis atopic
     Dosage: 300 MG QOW
     Route: 058
     Dates: start: 202407, end: 20241014

REACTIONS (15)
  - Rectal haemorrhage [Unknown]
  - Eczema [Unknown]
  - Pruritus [Unknown]
  - Pigmentation disorder [Unknown]
  - Weight decreased [Not Recovered/Not Resolved]
  - Hypertension [Unknown]
  - Fatigue [Not Recovered/Not Resolved]
  - Lacrimation increased [Unknown]
  - Palpitations [Unknown]
  - Gastritis [Unknown]
  - Diarrhoea [Not Recovered/Not Resolved]
  - Nausea [Not Recovered/Not Resolved]
  - Dizziness [Not Recovered/Not Resolved]
  - Arthralgia [Unknown]
  - Eye irritation [Unknown]

NARRATIVE: CASE EVENT DATE: 20240101
